FAERS Safety Report 7148066-2 (Version None)
Quarter: 2010Q4

REPORT INFORMATION
  Report Type: 
  Country: None (occurrence: None)
  Receive Date: 20101209
  Receipt Date: 20101126
  Transmission Date: 20110411
  Serious: Yes (Hospitalization)
  Sender: FDA-Public Use
  Company Number: GB-ELI_LILLY_AND_COMPANY-GB201011006863

PATIENT
  Age: 45 Year
  Sex: Male

DRUGS (7)
  1. FLUOXETINE [Suspect]
     Dosage: 20 MG, UNK
  2. ARIPIPRAZOLE [Concomitant]
     Dosage: 15 MG, DAILY (1/D)
  3. DENZAPINE [Concomitant]
     Indication: SCHIZOPHRENIA
     Dosage: 100 MG, 2/D
     Route: 048
     Dates: start: 20030901
  4. LACTULOSE [Concomitant]
     Dosage: 15 MG, 2/D
  5. METFORMIN [Concomitant]
     Dosage: 850 MG, 3/D
  6. ROSIGLITAZONE [Concomitant]
     Dosage: 4 MG, DAILY (1/D)
  7. SIMVASTATIN [Concomitant]

REACTIONS (2)
  - DIZZINESS [None]
  - SYNCOPE [None]
